FAERS Safety Report 14482068 (Version 1)
Quarter: 2018Q1

REPORT INFORMATION
  Report Type: Spontaneous
  Country: JP (occurrence: JP)
  Receive Date: 20180202
  Receipt Date: 20180202
  Transmission Date: 20180509
  Serious: Yes (Death, Other)
  Sender: FDA-Public Use
  Company Number: JP-PURDUE-GBR-2018-0052865

PATIENT
  Age: 67 Year
  Sex: Female

DRUGS (2)
  1. OXYCONTIN [Suspect]
     Active Substance: OXYCODONE HYDROCHLORIDE
     Indication: CANCER PAIN
     Dosage: 10 MG, TID
     Route: 048
     Dates: start: 201710, end: 20171224
  2. OXYCONTIN [Suspect]
     Active Substance: OXYCODONE HYDROCHLORIDE
     Indication: CHEST PAIN

REACTIONS (4)
  - Infection [Unknown]
  - Delirium [Fatal]
  - Malignant neoplasm progression [Unknown]
  - Pyrexia [Unknown]

NARRATIVE: CASE EVENT DATE: 20171223
